FAERS Safety Report 15407174 (Version 1)
Quarter: 2018Q3

REPORT INFORMATION
  Report Type: Spontaneous
  Country: US (occurrence: US)
  Receive Date: 20180920
  Receipt Date: 20180920
  Transmission Date: 20181010
  Serious: Yes (Other)
  Sender: FDA-Public Use
  Company Number: US-SA-2017SA256199

PATIENT
  Age: 52 Year
  Sex: Female
  Weight: 98.88 kg

DRUGS (8)
  1. HERCEPTIN [Concomitant]
     Active Substance: TRASTUZUMAB
  2. CARBOPLATIN. [Concomitant]
     Active Substance: CARBOPLATIN
     Indication: CHEMOTHERAPY
  3. INDERAL [Concomitant]
     Active Substance: PROPRANOLOL HYDROCHLORIDE
     Dosage: UNK UNK, UNK
     Route: 065
     Dates: start: 199908
  4. OXYBUTIN [Concomitant]
     Active Substance: OXYBUTYNIN
     Dosage: UNK UNK, UNK
     Route: 065
     Dates: start: 2001
  5. NORVASC [Concomitant]
     Active Substance: AMLODIPINE BESYLATE
     Dosage: UNK UNK, UNK
     Route: 065
     Dates: start: 199908
  6. PACLITAXEL. [Concomitant]
     Active Substance: PACLITAXEL
     Indication: CHEMOTHERAPY
  7. TAXOTERE [Suspect]
     Active Substance: DOCETAXEL
     Dosage: UNK UNK,QCY
     Route: 042
     Dates: start: 20090824, end: 20090824
  8. TAXOTERE [Suspect]
     Active Substance: DOCETAXEL
     Indication: BREAST CANCER
     Dosage: UNK UNK,QCY
     Route: 042
     Dates: start: 20090504, end: 20090504

REACTIONS (1)
  - Alopecia [Recovering/Resolving]

NARRATIVE: CASE EVENT DATE: 200905
